FAERS Safety Report 18168872 (Version 1)
Quarter: 2020Q3

REPORT INFORMATION
  Report Type: Spontaneous
  Country: US (occurrence: US)
  Receive Date: 20200818
  Receipt Date: 20200818
  Transmission Date: 20201103
  Serious: Yes (Hospitalization, Disabling)
  Sender: FDA-Public Use
  Company Number: None

PATIENT
  Age: 60 Year
  Sex: Male

DRUGS (12)
  1. QUETIAPINE FUMARATE 300 MG 1QD [Concomitant]
     Dates: start: 20190515
  2. PRAMIPEXOLE 1 MG 1QD [Concomitant]
     Dates: start: 20190606
  3. CLONAZEPAM 2MG 1BID [Concomitant]
     Dates: start: 20190508
  4. GABAPENTIN 600MG 1TID [Concomitant]
     Dates: start: 20190515
  5. LEVOTHYROXINE 125 MCG [Concomitant]
     Active Substance: LEVOTHYROXINE SODIUM
     Dates: start: 20190606
  6. HYDROCHLOROTHIAZIDE 12.5 MG 1 TWICE WEEKLY [Concomitant]
     Dates: start: 20190613
  7. ATORVASTAIN 40 MG 1QHS [Concomitant]
     Dates: start: 20190606
  8. AMLODIPINE 5 MG 1QD [Concomitant]
     Dates: start: 20190606
  9. LITHIUM CARBONATE. [Suspect]
     Active Substance: LITHIUM CARBONATE
     Indication: BIPOLAR DISORDER
     Route: 048
     Dates: start: 20190404, end: 20190709
  10. CARVEDILIL 12.5 MG 1BID [Concomitant]
     Dates: start: 20190606
  11. METHOCARBOMAL 750 MG 1TID [Concomitant]
     Dates: start: 20190606
  12. METFORMIN 500 MG 1BID [Concomitant]
     Dates: start: 20190606

REACTIONS (8)
  - Respiratory failure [None]
  - Speech disorder [None]
  - Toxicity to various agents [None]
  - Toxic encephalopathy [None]
  - Wheelchair user [None]
  - Psychotic disorder [None]
  - Acute kidney injury [None]
  - Sepsis [None]

NARRATIVE: CASE EVENT DATE: 20190709
